FAERS Safety Report 26154516 (Version 3)
Quarter: 2025Q4

REPORT INFORMATION
  Report Type: Spontaneous
  Country: EU (occurrence: EU)
  Receive Date: 20251215
  Receipt Date: 20251226
  Transmission Date: 20260119
  Serious: Yes (Hospitalization)
  Sender: Haleon PLC
  Company Number: EU-SANDOZ-SDZ2025DE092385

PATIENT
  Sex: Male

DRUGS (7)
  1. DICLOFENAC [Suspect]
     Active Substance: DICLOFENAC
     Indication: Product used for unknown indication
     Dosage: 75MG, ROA: UNKNOWN
  2. COSENTYX [Suspect]
     Active Substance: SECUKINUMAB
     Indication: Product used for unknown indication
     Dosage: 150 MG, PATIENT ROA: UNKNOWN
  3. COSENTYX [Suspect]
     Active Substance: SECUKINUMAB
     Dosage: 150 MG, PATIENT ROA: UNKNOWN
  4. COSENTYX [Suspect]
     Active Substance: SECUKINUMAB
     Dosage: 150 MG, PATIENT ROA: UNKNOWN
     Dates: start: 20240909, end: 20250203
  5. COSENTYX [Suspect]
     Active Substance: SECUKINUMAB
     Dosage: 150 MG, PATIENT ROA: UNKNOWN
  6. ETORICOXIB [Suspect]
     Active Substance: ETORICOXIB
     Indication: Product used for unknown indication
     Dosage: 90 MG, PATIENT ROA: UNKNOWN
  7. ETORICOXIB [Suspect]
     Active Substance: ETORICOXIB
     Dosage: 90 MG, PATIENT ROA: UNKNOWN
     Dates: start: 20240730, end: 20241115

REACTIONS (1)
  - Osteoarthritis [Unknown]
